FAERS Safety Report 23958942 (Version 1)
Quarter: 2024Q2

REPORT INFORMATION
  Report Type: Report from Study
  Country: AE (occurrence: AE)
  Receive Date: 20240611
  Receipt Date: 20240611
  Transmission Date: 20240716
  Serious: Yes (Hospitalization)
  Sender: FDA-Public Use
  Company Number: AE-ABBVIE-5418030

PATIENT
  Age: 37 Year
  Sex: Female
  Weight: 95 kg

DRUGS (6)
  1. RISANKIZUMAB [Suspect]
     Active Substance: RISANKIZUMAB
     Indication: Psoriasis
     Route: 058
     Dates: start: 20210926, end: 20211026
  2. OMEGA3 JACK [Concomitant]
     Indication: Product used for unknown indication
     Route: 048
  3. CALCIPOTRIENE [Concomitant]
     Active Substance: CALCIPOTRIENE
     Indication: Product used for unknown indication
     Dosage: 5% - 0.5%
     Route: 061
  4. IRON AND VITAMIN C [Concomitant]
     Indication: Product used for unknown indication
     Dosage: 30MG + 70MG?SUCROSOMAL
     Route: 048
  5. CALCIUM\CHOLECALCIFEROL\MAGNESIUM [Concomitant]
     Active Substance: CALCIUM\CHOLECALCIFEROL\MAGNESIUM
     Indication: Product used for unknown indication
     Dosage: 320MG + 48MG
     Route: 048
  6. ZINC [Concomitant]
     Active Substance: PYRITHIONE ZINC\ZINC\ZINC CHLORIDE
     Indication: Product used for unknown indication

REACTIONS (4)
  - Bradycardia foetal [Unknown]
  - Maternal exposure during pregnancy [Unknown]
  - Live birth [Unknown]
  - Psoriasis [Unknown]
